FAERS Safety Report 24593296 (Version 1)
Quarter: 2024Q4

REPORT INFORMATION
  Report Type: Spontaneous
  Country: US (occurrence: None)
  Receive Date: 20241107
  Receipt Date: 20241107
  Transmission Date: 20250115
  Serious: Yes (Death)
  Sender: Public
  Company Number: None

PATIENT
  Age: 77 Year
  Sex: Male

DRUGS (9)
  1. PIRFENIDONE [Suspect]
     Active Substance: PIRFENIDONE
     Indication: Idiopathic pulmonary fibrosis
     Dosage: FREQUENCY : 3 TIMES A DAY;?
     Route: 048
     Dates: start: 202408
  2. GLIPIZIDE [Concomitant]
     Active Substance: GLIPIZIDE
  3. CILOSTAZOL [Concomitant]
  4. ASPIRIN [Concomitant]
  5. ATORBASTATIN [Concomitant]
  6. CARVEDILOL [Concomitant]
  7. HYDROCHLOROTHIAZIDE [Concomitant]
     Active Substance: HYDROCHLOROTHIAZIDE
  8. LANTUS [Concomitant]
     Active Substance: INSULIN GLARGINE
  9. GABPENTIN [Concomitant]

REACTIONS (1)
  - Death [None]

NARRATIVE: CASE EVENT DATE: 20241105
